FAERS Safety Report 9894732 (Version 1)
Quarter: 2014Q1

REPORT INFORMATION
  Report Type: Report from Study
  Country: BR (occurrence: BR)
  Receive Date: 20140213
  Receipt Date: 20140213
  Transmission Date: 20141002
  Serious: Yes (Hospitalization, Other)
  Sender: FDA-Public Use
  Company Number: BR-ABBVIE-14P-020-1199286-00

PATIENT
  Age: 51 Year
  Sex: Female
  Weight: 86 kg

DRUGS (8)
  1. HUMIRA [Suspect]
     Indication: RHEUMATOID ARTHRITIS
     Route: 058
     Dates: end: 201308
  2. METFORMIN [Concomitant]
     Indication: DIABETES MELLITUS
  3. GLICLAZIDE [Concomitant]
     Indication: DIABETES MELLITUS
  4. APROVEL [Concomitant]
     Indication: HYPERTENSION
  5. LEFLUNOMIDE [Concomitant]
     Indication: RHEUMATOID ARTHRITIS
  6. PREDNISONE [Concomitant]
     Indication: RHEUMATOID ARTHRITIS
  7. UNSPECIFIED ANALGESIC [Concomitant]
     Indication: PAIN
  8. UNSPECIFIED ANTI-INFLAMMATORY [Concomitant]
     Indication: PRODUCT USED FOR UNKNOWN INDICATION

REACTIONS (5)
  - Tendon rupture [Recovering/Resolving]
  - Localised infection [Recovering/Resolving]
  - Limb injury [Recovering/Resolving]
  - Skin lesion [Recovering/Resolving]
  - Skin wound [Recovering/Resolving]
